FAERS Safety Report 7995981-3 (Version None)
Quarter: 2011Q4

REPORT INFORMATION
  Report Type: 
  Country: None (occurrence: None)
  Receive Date: 20111220
  Receipt Date: 20111205
  Transmission Date: 20120403
  Serious: Yes (Death)
  Sender: FDA-Public Use
  Company Number: PHHY2011US110245

PATIENT
  Age: 48 Year
  Sex: Male

DRUGS (4)
  1. CLOZAPINE [Suspect]
     Route: 048
  2. BETA BLOCKING AGENTS [Suspect]
  3. CITALOPRAM [Suspect]
     Route: 048
  4. LAMOTRIGINE [Suspect]

REACTIONS (2)
  - COMPLETED SUICIDE [None]
  - DRUG LEVEL INCREASED [None]
